FAERS Safety Report 9770120 (Version 3)
Quarter: 2014Q2

REPORT INFORMATION
  Report Type: Spontaneous
  Country: US (occurrence: US)
  Receive Date: 20131218
  Receipt Date: 20140414
  Transmission Date: 20141212
  Serious: Yes (Hospitalization)
  Sender: FDA-Public Use
  Company Number: US-BAYER-2013-153237

PATIENT
  Age: 28 Year
  Sex: Female
  Weight: 61.22 kg

DRUGS (2)
  1. MIRENA [Suspect]
     Indication: CONTRACEPTION
     Dosage: 20 MCG/24HR, CONT
     Route: 015
     Dates: start: 20110120, end: 20110630
  2. MIRENA [Suspect]
     Indication: MENORRHAGIA

REACTIONS (5)
  - Embedded device [None]
  - Injury [None]
  - Medical device discomfort [None]
  - Medical device pain [None]
  - Device difficult to use [None]
